FAERS Safety Report 16883508 (Version 1)
Quarter: 2019Q4

REPORT INFORMATION
  Report Type: Spontaneous
  Country: AT (occurrence: AT)
  Receive Date: 20191004
  Receipt Date: 20191004
  Transmission Date: 20200122
  Serious: Yes (Other)
  Sender: FDA-Public Use
  Company Number: AT-TEVA-2019-AT-1117205

PATIENT
  Sex: Female
  Weight: 54 kg

DRUGS (13)
  1. CIPRALEX [Concomitant]
     Active Substance: ESCITALOPRAM OXALATE
     Dates: start: 2010, end: 2014
  2. KEPPRA [Suspect]
     Active Substance: LEVETIRACETAM
     Dosage: 2000 MG
     Dates: start: 200804, end: 200808
  3. KEPPRA [Suspect]
     Active Substance: LEVETIRACETAM
     Dosage: 2000 MG
     Dates: start: 2002, end: 2004
  4. LEVETIRACETAM ACTAVIS [Suspect]
     Active Substance: LEVETIRACETAM
     Indication: EPILEPSY
     Dosage: 1000 MG
     Dates: start: 201401, end: 201706
  5. LEVETIRACETAM ACTAVIS [Suspect]
     Active Substance: LEVETIRACETAM
     Dosage: 500 MG
     Dates: start: 201706, end: 201802
  6. OLEOVIT TROPFEN [Concomitant]
     Dates: start: 201706
  7. MAGNESIUM [Concomitant]
     Active Substance: MAGNESIUM
     Dates: start: 201808
  8. DEPAKINE [Concomitant]
     Active Substance: VALPROATE SODIUM
     Dosage: 1000 MG
     Dates: start: 2000, end: 2002
  9. KEPPRA [Suspect]
     Active Substance: LEVETIRACETAM
     Dosage: 1000 MG
     Dates: start: 2004, end: 2008
  10. KEPPRA [Suspect]
     Active Substance: LEVETIRACETAM
     Indication: EPILEPSY
     Dosage: 1000 MG
     Dates: start: 200911, end: 201401
  11. KEPPRA [Suspect]
     Active Substance: LEVETIRACETAM
     Dosage: 1500 MG
     Dates: start: 200808, end: 200911
  12. KEPPRA [Suspect]
     Active Substance: LEVETIRACETAM
     Dosage: 2000 MG
     Dates: start: 2000, end: 2002
  13. MAXI KALZ [Concomitant]
     Indication: OSTEOPENIA
     Dates: start: 201808

REACTIONS (3)
  - Spinal stenosis [Not Recovered/Not Resolved]
  - Osteopenia [Not Recovered/Not Resolved]
  - Osteochondrosis [Recovered/Resolved]

NARRATIVE: CASE EVENT DATE: 2008
